FAERS Safety Report 8874515 (Version 4)
Quarter: 2013Q1

REPORT INFORMATION
  Report Type: Spontaneous
  Country: US (occurrence: US)
  Receive Date: 20121031
  Receipt Date: 20130128
  Transmission Date: 20140127
  Serious: No
  Sender: FDA-Public Use
  Company Number: US-009507513-1210USA012957

PATIENT
  Age: 13 Year
  Sex: Female
  Weight: 33.11 kg

DRUGS (5)
  1. IMPLANON [Suspect]
     Indication: CONTRACEPTION
     Dosage: 1 DF, UNK
     Route: 059
     Dates: start: 20120130
  2. LAMICTAL [Concomitant]
  3. TRILEPTAL [Concomitant]
  4. BACLOFEN [Concomitant]
  5. MIRALAX [Concomitant]

REACTIONS (3)
  - Menstruation irregular [Not Recovered/Not Resolved]
  - Device difficult to use [Not Recovered/Not Resolved]
  - Medical device complication [Not Recovered/Not Resolved]
